FAERS Safety Report 20416373 (Version 2)
Quarter: 2022Q1

REPORT INFORMATION
  Report Type: Spontaneous
  Country: US (occurrence: US)
  Receive Date: 20220202
  Receipt Date: 20220215
  Transmission Date: 20220424
  Serious: No
  Sender: FDA-Public Use
  Company Number: US-BEH-2022140862

PATIENT
  Sex: Male

DRUGS (2)
  1. ZEMAIRA [Suspect]
     Active Substance: .ALPHA.1-PROTEINASE INHIBITOR HUMAN
     Indication: Alpha-1 antitrypsin deficiency
     Dosage: 8000 MILLIGRAM, QOW
     Route: 042
     Dates: start: 20211005
  2. ZEMAIRA [Suspect]
     Active Substance: .ALPHA.1-PROTEINASE INHIBITOR HUMAN
     Dosage: 8000 MILLIGRAM, QOW
     Route: 042
     Dates: start: 202112

REACTIONS (3)
  - Dyspepsia [Unknown]
  - Dizziness [Recovered/Resolved]
  - Dry mouth [Recovered/Resolved]
